FAERS Safety Report 5806927-8 (Version None)
Quarter: 2008Q3

REPORT INFORMATION
  Report Type: 
  Country: None (occurrence: None)
  Receive Date: 20080711
  Receipt Date: 20080703
  Transmission Date: 20090109
  Serious: Yes (Other)
  Sender: FDA-Public Use
  Company Number: FR-JNJFOC-20080601991

PATIENT
  Age: 56 Year
  Sex: Male
  Weight: 90 kg

DRUGS (7)
  1. RISPERDAL [Suspect]
     Indication: DRUG USE FOR UNKNOWN INDICATION
     Route: 048
  2. RISPERDAL [Suspect]
     Route: 048
  3. NOZINAN [Concomitant]
     Route: 048
  4. ATARAX [Concomitant]
  5. THERALENE [Concomitant]
  6. SULFARLEM [Concomitant]
     Route: 048
  7. ARTANE [Concomitant]
     Route: 048

REACTIONS (5)
  - AKINESIA [None]
  - EXTRAPYRAMIDAL DISORDER [None]
  - HYPOTONIA [None]
  - PAIN [None]
  - TREMOR [None]
